FAERS Safety Report 9807817 (Version 2)
Quarter: 2017Q4

REPORT INFORMATION
  Report Type: Report from Study
  Country: US (occurrence: US)
  Receive Date: 20140110
  Receipt Date: 20171018
  Transmission Date: 20180321
  Serious: Yes (Death, Hospitalization, Other)
  Sender: FDA-Public Use
  Company Number: US-ROCHE-1327770

PATIENT
  Age: 20 Year
  Sex: Male
  Weight: 87.8 kg

DRUGS (12)
  1. VALCYTE [Concomitant]
     Active Substance: VALGANCICLOVIR HYDROCHLORIDE
  2. ATG [Concomitant]
     Active Substance: LAPINE T-LYMPHOCYTE IMMUNE GLOBULIN
  3. PROGRAF [Concomitant]
     Active Substance: TACROLIMUS\TACROLIMUS ANHYDROUS
     Dosage: 0.5 IN THE MORNING AND 1 MG IN THE EVENING
     Route: 065
  4. NEXIUM [Concomitant]
     Active Substance: ESOMEPRAZOLE MAGNESIUM
  5. URSODIOL. [Concomitant]
     Active Substance: URSODIOL
  6. BACTRIM [Concomitant]
     Active Substance: SULFAMETHOXAZOLE\TRIMETHOPRIM
     Dosage: ON MODAY AND THURSDAY
     Route: 048
  7. RITUXIMAB. [Suspect]
     Active Substance: RITUXIMAB
     Indication: PROPHYLAXIS AGAINST GRAFT VERSUS HOST DISEASE
     Route: 042
     Dates: start: 20111209
  8. CELLCEPT [Concomitant]
     Active Substance: MYCOPHENOLATE MOFETIL\MYCOPHENOLATE MOFETIL HYDROCHLORIDE
  9. CYCLOPHOSPHAMIDE. [Concomitant]
     Active Substance: CYCLOPHOSPHAMIDE
  10. VFEND [Concomitant]
     Active Substance: VORICONAZOLE
     Route: 048
  11. RITUXIMAB. [Suspect]
     Active Substance: RITUXIMAB
     Dosage: DAY 8 AND 15
     Route: 042
     Dates: start: 20111217
  12. FLUDARABINE [Concomitant]
     Active Substance: FLUDARABINE PHOSPHATE

REACTIONS (11)
  - Graft versus host disease in gastrointestinal tract [Fatal]
  - BK virus infection [Unknown]
  - Bladder perforation [Unknown]
  - Dysuria [Unknown]
  - Diarrhoea [Unknown]
  - Cystitis viral [Unknown]
  - Haematuria [Unknown]
  - Pain [Unknown]
  - Hyperglycaemia [Unknown]
  - Pneumonia [Unknown]
  - Febrile neutropenia [Unknown]

NARRATIVE: CASE EVENT DATE: 20111219
